FAERS Safety Report 4295703-6 (Version None)
Quarter: 2004Q1

REPORT INFORMATION
  Report Type: 
  Country: None (occurrence: None)
  Receive Date: 20040216
  Receipt Date: 20040119
  Transmission Date: 20041129
  Serious: Yes (Hospitalization)
  Sender: FDA-Public Use
  Company Number: JP-GLAXOSMITHKLINE-B0320407A

PATIENT
  Age: 66 Year
  Sex: Male

DRUGS (1)
  1. ZOVIRAX [Suspect]
     Route: 065

REACTIONS (2)
  - DYSLALIA [None]
  - HYPOAESTHESIA [None]
